FAERS Safety Report 5299327-3 (Version None)
Quarter: 2007Q2

REPORT INFORMATION
  Report Type: 
  Country: None (occurrence: None)
  Receive Date: 20070411
  Receipt Date: 20070411
  Transmission Date: 20071010
  Serious: No
  Sender: FDA-Public Use
  Company Number: None

PATIENT
  Age: 57 Year
  Sex: Male

DRUGS (1)
  1. OXALIPLATIN [Suspect]

REACTIONS (3)
  - HYPOAESTHESIA [None]
  - NEUROPATHY [None]
  - PARAESTHESIA [None]
